FAERS Safety Report 9012836 (Version 1)
Quarter: 2013Q1

REPORT INFORMATION
  Report Type: Report from Study
  Country: KR (occurrence: KR)
  Receive Date: 20130114
  Receipt Date: 20130114
  Transmission Date: 20140127
  Serious: Yes (Death, Hospitalization)
  Sender: FDA-Public Use
  Company Number: KR-009507513-1301KOR004066

PATIENT
  Age: 76 Year
  Sex: Male
  Weight: 65 kg

DRUGS (2)
  1. TEMOZOLOMIDE [Suspect]
     Indication: GLIOBLASTOMA
     Dosage: 140 MG, QD
     Route: 048
     Dates: start: 20101022, end: 20101029
  2. BEVACIZUMAB [Suspect]
     Indication: GLIOBLASTOMA
     Dosage: NK, QD
     Route: 042
     Dates: start: 20101022, end: 20101022

REACTIONS (1)
  - Decreased appetite [Fatal]
